FAERS Safety Report 23233271 (Version 2)
Quarter: 2023Q4

REPORT INFORMATION
  Report Type: Spontaneous
  Country: JP (occurrence: JP)
  Receive Date: 20231128
  Receipt Date: 20231129
  Transmission Date: 20240110
  Serious: Yes (Hospitalization, Other)
  Sender: FDA-Public Use
  Company Number: JP-MSD-M2023-38426

PATIENT
  Sex: Male

DRUGS (1)
  1. KEYTRUDA [Suspect]
     Active Substance: PEMBROLIZUMAB
     Indication: Transitional cell carcinoma
     Dosage: 200 MILLIGRAM, Q3W
     Route: 041
     Dates: end: 202308

REACTIONS (5)
  - Hospitalisation [Unknown]
  - Pancreatitis [Unknown]
  - Pruritus [Unknown]
  - Oral candidiasis [Recovering/Resolving]
  - Rash erythematous [Recovering/Resolving]

NARRATIVE: CASE EVENT DATE: 20230101
